FAERS Safety Report 19816180 (Version 2)
Quarter: 2021Q4

REPORT INFORMATION
  Report Type: Report from Study
  Country: AT (occurrence: AT)
  Receive Date: 20210910
  Receipt Date: 20211208
  Transmission Date: 20220303
  Serious: Yes (Hospitalization, Other)
  Sender: FDA-Public Use
  Company Number: AT-ROCHE-2840760

PATIENT
  Age: 65 Year
  Sex: Male
  Weight: 86.8 kg

DRUGS (12)
  1. CARBOPLATIN [Suspect]
     Active Substance: CARBOPLATIN
     Indication: Small cell lung cancer extensive stage
     Dosage: 569.9 MG
     Route: 065
     Dates: start: 20210113
  2. ATEZOLIZUMAB [Suspect]
     Active Substance: ATEZOLIZUMAB
     Indication: Small cell lung cancer extensive stage
     Dosage: 1200 MG, EVERY 3 WEEKS, MOST RECENT DOSE OF ATEZOLIZUMAB (1200 MG) ON 20MAY2021 PRIOR TO ONSET OF AE
     Route: 041
     Dates: start: 20210113
  3. ETOPOSIDE [Suspect]
     Active Substance: ETOPOSIDE
     Indication: Small cell lung cancer extensive stage
     Dosage: 196 MG
     Route: 065
     Dates: start: 20210113
  4. ARANESP [Concomitant]
     Active Substance: DARBEPOETIN ALFA
     Indication: Prophylaxis
     Dates: start: 20210430, end: 20210430
  5. ATORVASTATIN [Concomitant]
     Active Substance: ATORVASTATIN
     Dates: start: 20160823
  6. TOZINAMERAN [Concomitant]
     Active Substance: TOZINAMERAN
     Indication: Prophylaxis
     Dosage: DOSE 2, SINGLE
     Dates: start: 20210515, end: 20210515
  7. EXFORGE [Concomitant]
     Active Substance: AMLODIPINE BESYLATE\VALSARTAN
     Dates: start: 20160829
  8. DIOVAN [Concomitant]
     Active Substance: VALSARTAN
     Dates: start: 20191205
  9. MYCOSTATIN [Concomitant]
     Active Substance: NYSTATIN
     Dosage: UNK, 3X/DAY
     Dates: start: 20210520
  10. POLYETHYLENE GLYCOL 3350\POTASSIUM CHLORIDE\SODIUM BICARBONATE\SODIUM [Concomitant]
     Active Substance: POLYETHYLENE GLYCOL 3350\POTASSIUM CHLORIDE\SODIUM BICARBONATE\SODIUM CHLORIDE
     Dates: start: 20210216, end: 20210429
  11. PANTOPRAZOLE SODIUM [Concomitant]
     Active Substance: PANTOPRAZOLE SODIUM
     Indication: Prophylaxis
     Dosage: 40 MG, 1X/DAY
     Dates: start: 20210515, end: 20210515
  12. ASPIRIN [Concomitant]
     Active Substance: ASPIRIN
     Dates: start: 20160823, end: 20210601

REACTIONS (4)
  - Radiation pneumonitis [Not Recovered/Not Resolved]
  - Venous thrombosis [Not Recovered/Not Resolved]
  - Pneumonia [Not Recovered/Not Resolved]
  - Pyrexia [Recovered/Resolved]

NARRATIVE: CASE EVENT DATE: 20210527
